FAERS Safety Report 8563521-6 (Version None)
Quarter: 2012Q3

REPORT INFORMATION
  Report Type: 
  Country: None (occurrence: None)
  Receive Date: 20120802
  Receipt Date: 20120726
  Transmission Date: 20120928
  Serious: Yes (Death, Other)
  Sender: FDA-Public Use
  Company Number: US-UCBSA-061124

PATIENT
  Age: 29 Year
  Sex: Male

DRUGS (8)
  1. LEVETIRACETAM [Suspect]
     Indication: CONVULSION
     Dosage: UNKNOWN DOSE
     Route: 048
     Dates: start: 20100101, end: 20100101
  2. LEVETIRACETAM [Suspect]
     Route: 048
     Dates: start: 20100101
  3. LEVETIRACETAM [Suspect]
     Dosage: UNKNOWN DOSE (WEANED OFF)
     Route: 048
  4. LACOSAMIDE [Suspect]
     Indication: CONVULSION
     Dates: start: 20100101
  5. TOPIRAMATE [Suspect]
     Indication: CONVULSION
     Dates: start: 20100101
  6. VALPROATE SODIUM [Suspect]
     Indication: CONVULSION
     Dates: start: 20100101
  7. PHENYTOIN [Suspect]
     Indication: CONVULSION
     Dosage: QHS
     Dates: start: 20100101
  8. LEVETIRACETAM [Suspect]
     Route: 048
     Dates: start: 20090101

REACTIONS (2)
  - CONVULSION [None]
  - DEATH [None]
